FAERS Safety Report 25212112 (Version 2)
Quarter: 2025Q2

REPORT INFORMATION
  Report Type: Report from Study
  Country: JP (occurrence: JP)
  Receive Date: 20250418
  Receipt Date: 20250622
  Transmission Date: 20250717
  Serious: Yes (Other)
  Sender: ALEXION PHARMACEUTICALS
  Company Number: JP-ASTRAZENECA-230019631_011820_P_1

PATIENT
  Age: 17 Year
  Weight: 45.7 kg

DRUGS (2)
  1. KOSELUGO [Suspect]
     Active Substance: SELUMETINIB
     Indication: Neurofibroma
     Dosage: 70 MILLIGRAM, QD
  2. KOSELUGO [Suspect]
     Active Substance: SELUMETINIB
     Dosage: 80 MILLIGRAM, QD

REACTIONS (2)
  - Rhabdomyolysis [Recovered/Resolved]
  - Dermatitis acneiform [Not Recovered/Not Resolved]
